FAERS Safety Report 22240229 (Version 1)
Quarter: 2023Q2

REPORT INFORMATION
  Report Type: Report from Study
  Country: BR (occurrence: BR)
  Receive Date: 20230421
  Receipt Date: 20230421
  Transmission Date: 20230722
  Serious: Yes (Other)
  Sender: FDA-Public Use
  Company Number: BR-JNJFOC-20230439489

PATIENT
  Age: 35 Year
  Sex: Male
  Weight: 73 kg

DRUGS (2)
  1. SIMPONI [Suspect]
     Active Substance: GOLIMUMAB
     Indication: Ankylosing spondylitis
     Route: 058
     Dates: start: 20211129
  2. SIMPONI [Suspect]
     Active Substance: GOLIMUMAB

REACTIONS (14)
  - Hypertension [Unknown]
  - Arthralgia [Unknown]
  - Headache [Unknown]
  - Ocular hyperaemia [Unknown]
  - Fatigue [Unknown]
  - Intervertebral disc protrusion [Unknown]
  - Glucose tolerance impaired [Unknown]
  - Urinary tract infection bacterial [Unknown]
  - Anxiety [Unknown]
  - Abdominal distension [Unknown]
  - Eye irritation [Unknown]
  - Eye pain [Unknown]
  - Bladder discomfort [Unknown]
  - Chest discomfort [Unknown]

NARRATIVE: CASE EVENT DATE: 20220101
